FAERS Safety Report 5892436-7 (Version None)
Quarter: 2008Q3

REPORT INFORMATION
  Report Type: 
  Country: None (occurrence: None)
  Receive Date: 20080923
  Receipt Date: 20080910
  Transmission Date: 20090109
  Serious: Yes (Hospitalization)
  Sender: FDA-Public Use
  Company Number: ES-JNJFOC-20080903042

PATIENT
  Sex: Male
  Weight: 84 kg

DRUGS (8)
  1. DURAGESIC-100 [Suspect]
     Indication: TUMOUR PAIN
     Route: 062
  2. ORAMORPH SR [Suspect]
     Indication: TUMOUR PAIN
     Route: 065
  3. PACLITAXEL [Concomitant]
     Indication: NON-SMALL CELL LUNG CANCER
     Route: 042
  4. CARBOPLATIN [Concomitant]
     Indication: NON-SMALL CELL LUNG CANCER
     Route: 042
  5. AG-013, 736 [Concomitant]
     Indication: NON-SMALL CELL LUNG CANCER
     Route: 048
  6. SIMVASTIN [Concomitant]
     Indication: DYSLIPIDAEMIA
  7. CYMBALTA [Concomitant]
     Indication: TUMOUR PAIN
  8. RIVOTRIL [Concomitant]
     Indication: PROPHYLAXIS

REACTIONS (1)
  - RENAL FAILURE ACUTE [None]
